FAERS Safety Report 24404773 (Version 1)
Quarter: 2024Q4

REPORT INFORMATION
  Report Type: Spontaneous
  Country: JP (occurrence: JP)
  Receive Date: 20241007
  Receipt Date: 20241007
  Transmission Date: 20250115
  Serious: No
  Sender: ROCHE
  Company Number: JP-CHUGAI-2024007046

PATIENT

DRUGS (5)
  1. GAZYVA [Suspect]
     Active Substance: OBINUTUZUMAB
     Indication: Follicular lymphoma
     Dosage: 1000 MILLIGRAM, EIGHT TIMES/3WEEKS? FREQUENCY TEXT:EIGHT TIMES/3WEEKS
     Route: 042
  2. CYCLOPHOSPHAMIDE [Suspect]
     Active Substance: CYCLOPHOSPHAMIDE
     Indication: Follicular lymphoma
     Dosage: SIX TIMES/3WEEKS? FREQUENCY TEXT:SIX TIMES/3WEEKS
     Route: 065
     Dates: start: 2023, end: 2023
  3. DOXORUBICIN HYDROCHLORIDE [Suspect]
     Active Substance: DOXORUBICIN HYDROCHLORIDE
     Indication: Follicular lymphoma
     Dosage: SIX TIMES/3WEEKS? FREQUENCY TEXT:SIX TIMES/3WEEKS
     Route: 065
     Dates: start: 2023, end: 2023
  4. PREDNISOLONE [Suspect]
     Active Substance: PREDNISOLONE
     Indication: Follicular lymphoma
     Dosage: SIX TIMES/3WEEKS? FREQUENCY TEXT:SIX TIMES/3WEEKS
     Route: 065
     Dates: start: 2023, end: 2023
  5. VINCRISTINE SULFATE [Suspect]
     Active Substance: VINCRISTINE SULFATE
     Indication: Follicular lymphoma
     Dosage: SIX TIMES/3WEEKS? FREQUENCY TEXT:SIX TIMES/3WEEKS
     Route: 065
     Dates: start: 2023, end: 2023

REACTIONS (1)
  - COVID-19 [Recovered/Resolved]

NARRATIVE: CASE EVENT DATE: 20231113
